FAERS Safety Report 23314925 (Version 1)
Quarter: 2023Q4

REPORT INFORMATION
  Report Type: Spontaneous
  Country: AU (occurrence: AU)
  Receive Date: 20231219
  Receipt Date: 20231219
  Transmission Date: 20240110
  Serious: Yes (Hospitalization, Other)
  Sender: FDA-Public Use
  Company Number: AU-CIPLA (EU) LIMITED-2023AU07986

PATIENT

DRUGS (5)
  1. LENALIDOMIDE [Suspect]
     Active Substance: LENALIDOMIDE
     Indication: Plasma cell myeloma
     Dosage: 10 MILLIGRAM, QD (ON AN EMPTY STOMACH)
     Route: 048
     Dates: start: 20210128, end: 20211008
  2. DEXAMETHASONE [Suspect]
     Active Substance: DEXAMETHASONE
     Indication: Plasma cell myeloma
     Dosage: 12 MILLIGRAM, 12 MG, ONCE A WEEK ON (SAME DAY EACH WEEK) 4 REFILLS
     Route: 048
     Dates: start: 20210128, end: 20211008
  3. INSULIN ASPART [Concomitant]
     Active Substance: INSULIN ASPART
     Indication: Diabetes mellitus
     Dosage: UNK
     Route: 065
  4. ZOMETA [Concomitant]
     Active Substance: ZOLEDRONIC ACID
     Indication: Product used for unknown indication
     Dosage: UNKUNK (INTERVAL: 1 MONTH)
     Route: 065
     Dates: end: 20210915
  5. ACTRAPID [Concomitant]
     Active Substance: INSULIN HUMAN
     Indication: Product used for unknown indication
     Dosage: UNK
     Route: 065

REACTIONS (2)
  - Orchitis [Recovered/Resolved]
  - Urinary tract infection staphylococcal [Recovered/Resolved]

NARRATIVE: CASE EVENT DATE: 20211008
